FAERS Safety Report 4901644-0 (Version None)
Quarter: 2006Q1

REPORT INFORMATION
  Report Type: 
  Country: None (occurrence: None)
  Receive Date: 20060206
  Receipt Date: 20050815
  Transmission Date: 20060701
  Serious: No
  Sender: FDA-Public Use
  Company Number: US-BRISTOL-MYERS SQUIBB COMPANY-13078209

PATIENT
  Age: 49 Year
  Sex: Female
  Weight: 113 kg

DRUGS (15)
  1. TAXOL [Suspect]
     Indication: BREAST CANCER
     Route: 042
     Dates: start: 20050805, end: 20050805
  2. PREDNISONE [Concomitant]
     Indication: PREMEDICATION
     Route: 048
     Dates: start: 20050804
  3. TYLENOL [Concomitant]
     Indication: PREMEDICATION
     Route: 048
     Dates: start: 20050805
  4. BENADRYL [Concomitant]
     Indication: PREMEDICATION
     Route: 048
     Dates: start: 20050805
  5. CIMETIDINE [Concomitant]
     Indication: PREMEDICATION
     Route: 042
     Dates: start: 20050805
  6. DIPHENHYDRAMINE [Concomitant]
     Indication: PREMEDICATION
  7. FOLIC ACID [Concomitant]
  8. IRON [Concomitant]
  9. COUMADIN [Concomitant]
  10. ZETIA [Concomitant]
  11. PRILOSEC [Concomitant]
  12. GEMFIBROZIL [Concomitant]
  13. OXYCONTIN [Concomitant]
  14. KYTRIL [Concomitant]
     Indication: PREMEDICATION
     Route: 042
     Dates: start: 20050805
  15. DEXAMETHASONE TAB [Concomitant]
     Indication: PREMEDICATION
     Route: 042
     Dates: start: 20050805

REACTIONS (8)
  - ARTHRALGIA [None]
  - BONE PAIN [None]
  - BREAST PAIN [None]
  - ERYTHEMA [None]
  - HYPOAESTHESIA [None]
  - MYALGIA [None]
  - NAIL DISORDER [None]
  - PRURITUS [None]
